FAERS Safety Report 10449848 (Version 1)
Quarter: 2014Q3

REPORT INFORMATION
  Report Type: Spontaneous
  Country: US (occurrence: US)
  Receive Date: 20140912
  Receipt Date: 20140912
  Transmission Date: 20150326
  Serious: No
  Sender: FDA-Public Use
  Company Number: US-INCYTE CORPORATION-2014IN002117

PATIENT
  Sex: Female

DRUGS (8)
  1. JAKAFI [Suspect]
     Active Substance: RUXOLITINIB
     Dosage: 15 MG, BID
     Route: 048
     Dates: start: 20140321
  2. VITAMIN D                          /00107901/ [Concomitant]
     Active Substance: ERGOCALCIFEROL
  3. PROCRIT [Concomitant]
     Active Substance: ERYTHROPOIETIN
  4. PROBIOTIC                          /06395501/ [Concomitant]
  5. AMBIEN [Concomitant]
     Active Substance: ZOLPIDEM TARTRATE
  6. FOLIC ACID. [Concomitant]
     Active Substance: FOLIC ACID
  7. L-THYROXINE                        /00068001/ [Concomitant]
  8. MULTIVITAMINS [Concomitant]
     Active Substance: VITAMINS

REACTIONS (4)
  - Memory impairment [Unknown]
  - Drug dose omission [Unknown]
  - Somnolence [Unknown]
  - Initial insomnia [Unknown]
